FAERS Safety Report 23590311 (Version 2)
Quarter: 2024Q2

REPORT INFORMATION
  Report Type: Spontaneous
  Country: US (occurrence: US)
  Receive Date: 20240304
  Receipt Date: 20240430
  Transmission Date: 20240716
  Serious: Yes (Disabling, Other)
  Sender: FDA-Public Use
  Company Number: US-HORIZON THERAPEUTICS-HZN-2024-002409

PATIENT

DRUGS (10)
  1. TEPEZZA [Suspect]
     Active Substance: TEPROTUMUMAB-TRBW
     Indication: Endocrine ophthalmopathy
     Dosage: 520 MG, SINGLE (FIRST INFUSION)
     Route: 042
     Dates: start: 20210624, end: 20210624
  2. TEPEZZA [Suspect]
     Active Substance: TEPROTUMUMAB-TRBW
     Indication: Graves^ disease
     Dosage: 1040 MG, SINGLE (SECOND INFUSION)
     Route: 042
     Dates: start: 20210715, end: 20210715
  3. TEPEZZA [Suspect]
     Active Substance: TEPROTUMUMAB-TRBW
     Dosage: 1040 MG, SINGLE (THIRD INFUSION)
     Route: 042
     Dates: start: 20210805, end: 20210805
  4. TEPEZZA [Suspect]
     Active Substance: TEPROTUMUMAB-TRBW
     Dosage: 1040 MG, SINGLE (FOURTH INFUSION)
     Route: 042
     Dates: start: 20210826, end: 20210826
  5. TEPEZZA [Suspect]
     Active Substance: TEPROTUMUMAB-TRBW
     Dosage: 1040 MG, SINGLE (FIFTH INFUSION)
     Route: 042
     Dates: start: 20210914, end: 20210914
  6. TEPEZZA [Suspect]
     Active Substance: TEPROTUMUMAB-TRBW
     Dosage: 1040 MG, SINGLE (SIXTH INFUSION)
     Route: 042
     Dates: start: 20211007, end: 20211007
  7. TEPEZZA [Suspect]
     Active Substance: TEPROTUMUMAB-TRBW
     Dosage: LAST INFUSION
     Route: 042
     Dates: start: 202110
  8. METHIMAZOLE [Concomitant]
     Active Substance: METHIMAZOLE
     Dosage: 15 MG, BID
  9. SELENIUM [Concomitant]
     Active Substance: SELENIUM
     Dosage: UNK UG
  10. PROPRANOLOL [Concomitant]
     Active Substance: PROPRANOLOL HYDROCHLORIDE
     Dosage: UNK MG

REACTIONS (36)
  - Deafness permanent [Not Recovered/Not Resolved]
  - Disability [Not Recovered/Not Resolved]
  - Physical disability [Not Recovered/Not Resolved]
  - Injury [Not Recovered/Not Resolved]
  - Emotional distress [Not Recovered/Not Resolved]
  - Impaired quality of life [Not Recovered/Not Resolved]
  - Concomitant disease aggravated [Not Recovered/Not Resolved]
  - Anxiety [Not Recovered/Not Resolved]
  - Discomfort [Not Recovered/Not Resolved]
  - Pain [Not Recovered/Not Resolved]
  - Tinnitus [Not Recovered/Not Resolved]
  - Product quality issue [Unknown]
  - Economic problem [Not Recovered/Not Resolved]
  - Influenza like illness [Unknown]
  - Swelling face [Unknown]
  - Diarrhoea [Unknown]
  - Fatigue [Unknown]
  - Alopecia [Unknown]
  - Weight increased [Unknown]
  - Muscle spasms [Unknown]
  - Abdominal distension [Unknown]
  - Foreign body sensation in eyes [Unknown]
  - Muscular weakness [Unknown]
  - Vision blurred [Unknown]
  - Diplopia [Unknown]
  - Frequent bowel movements [Unknown]
  - Depressed mood [Unknown]
  - Asthenopia [Unknown]
  - Head discomfort [Unknown]
  - Fistula [Unknown]
  - Brain fog [Unknown]
  - Nasopharyngitis [Unknown]
  - Vulvovaginal pain [Unknown]
  - Pyrexia [Recovered/Resolved]
  - Urinary incontinence [Unknown]
  - Vulvovaginal discomfort [Unknown]

NARRATIVE: CASE EVENT DATE: 20210701
